FAERS Safety Report 14310910 (Version 2)
Quarter: 2017Q4

REPORT INFORMATION
  Report Type: Report from Study
  Country: PK (occurrence: PK)
  Receive Date: 20171221
  Receipt Date: 20171222
  Transmission Date: 20180321
  Serious: Yes (Death, Other)
  Sender: FDA-Public Use
  Company Number: PHHY2017PK189805

PATIENT
  Age: 54 Year
  Sex: Female

DRUGS (1)
  1. FEMARA [Suspect]
     Active Substance: LETROZOLE
     Indication: BREAST CANCER
     Dosage: 2.5 MG, QD
     Route: 048
     Dates: start: 20170613

REACTIONS (5)
  - Cardiac arrest [Fatal]
  - Blood pressure decreased [Fatal]
  - Dyspnoea [Unknown]
  - Ascites [Unknown]
  - Dehydration [Unknown]

NARRATIVE: CASE EVENT DATE: 20171210
